FAERS Safety Report 17397488 (Version 2)
Quarter: 2020Q1

REPORT INFORMATION
  Report Type: Spontaneous
  Country: CA (occurrence: CA)
  Receive Date: 20200210
  Receipt Date: 20200312
  Transmission Date: 20200409
  Serious: Yes (Other)
  Sender: FDA-Public Use
  Company Number: CA-PFIZER INC-2020055487

PATIENT
  Age: 81 Year
  Sex: Female

DRUGS (1)
  1. BEVACIZUMAB. [Suspect]
     Active Substance: BEVACIZUMAB
     Indication: NEOVASCULAR AGE-RELATED MACULAR DEGENERATION
     Dosage: 1.25 MG, (1 EVERY 4 WEEKS)
     Route: 042

REACTIONS (7)
  - Product use in unapproved indication [Unknown]
  - Vitritis [Unknown]
  - Eye pain [Unknown]
  - Blindness [Unknown]
  - Off label use [Unknown]
  - Endophthalmitis [Unknown]
  - Hypopyon [Unknown]
